FAERS Safety Report 4612817-9 (Version None)
Quarter: 2005Q1

REPORT INFORMATION
  Report Type: 
  Country: None (occurrence: None)
  Receive Date: 20050318
  Receipt Date: 20050307
  Transmission Date: 20050727
  Serious: Yes (Hospitalization)
  Sender: FDA-Public Use
  Company Number: FR-JNJFOC-20050203818

PATIENT
  Sex: Female
  Weight: 68 kg

DRUGS (6)
  1. REMINYL [Suspect]
     Route: 049
     Dates: start: 20021001, end: 20040501
  2. REMINYL [Suspect]
     Route: 049
     Dates: start: 20021001, end: 20040501
  3. REMINYL [Suspect]
     Route: 049
     Dates: start: 20021001, end: 20040501
  4. ZOLOFT [Concomitant]
     Indication: DEPRESSION
     Route: 065
  5. TANAKAN [Concomitant]
     Indication: MEMORY IMPAIRMENT
     Route: 065
  6. LEVOTHYROX [Concomitant]
     Indication: THYROIDITIS
     Route: 065

REACTIONS (6)
  - ASTHENIA [None]
  - EYE ROLLING [None]
  - FALL [None]
  - HYPOTENSION [None]
  - LOSS OF CONSCIOUSNESS [None]
  - MALAISE [None]
